FAERS Safety Report 14733418 (Version 4)
Quarter: 2019Q1

REPORT INFORMATION
  Report Type: Spontaneous
  Country: US (occurrence: US)
  Receive Date: 20180409
  Receipt Date: 20190111
  Transmission Date: 20190417
  Serious: Yes (Hospitalization)
  Sender: FDA-Public Use
  Company Number: US-BIOGEN-2018BI00549302

PATIENT
  Age: 48 Year
  Sex: Male

DRUGS (1)
  1. TYSABRI [Suspect]
     Active Substance: NATALIZUMAB
     Indication: MULTIPLE SCLEROSIS
     Dosage: INFUSED OVER 1 HOUR
     Route: 065
     Dates: start: 20160509, end: 20180302

REACTIONS (4)
  - Drug effect decreased [Unknown]
  - Multiple sclerosis relapse [Recovered/Resolved]
  - Drug specific antibody present [Unknown]
  - Chills [Unknown]

NARRATIVE: CASE EVENT DATE: 20180308
